FAERS Safety Report 6549266-2 (Version None)
Quarter: 2010Q1

REPORT INFORMATION
  Report Type: 
  Country: None (occurrence: None)
  Receive Date: 20100125
  Receipt Date: 20100114
  Transmission Date: 20100710
  Serious: Yes (Hospitalization)
  Sender: FDA-Public Use
  Company Number: US-JNJFOC-20091205687

PATIENT
  Sex: Male
  Weight: 48.5 kg

DRUGS (3)
  1. INFLIXIMAB [Suspect]
     Indication: INFLAMMATORY BOWEL DISEASE
     Route: 042
  2. ANTIBIOTIC [Concomitant]
     Indication: INFLAMMATORY BOWEL DISEASE
  3. 5-ASA [Concomitant]
     Route: 048

REACTIONS (1)
  - ANAL ABSCESS [None]
